FAERS Safety Report 6106218-4 (Version None)
Quarter: 2009Q1

REPORT INFORMATION
  Report Type: 
  Country: None (occurrence: None)
  Receive Date: 20090306
  Receipt Date: 20090225
  Transmission Date: 20090719
  Serious: Yes (Hospitalization, Other)
  Sender: FDA-Public Use
  Company Number: US-ELI_LILLY_AND_COMPANY-US200806002422

PATIENT
  Sex: Female
  Weight: 84.807 kg

DRUGS (31)
  1. BYETTA [Suspect]
     Dosage: 5 UG, 2/D
     Route: 058
     Dates: start: 20060101, end: 20061201
  2. BYETTA [Suspect]
     Dosage: 10 UG, 2/D
     Dates: start: 20061201, end: 20080101
  3. VYTORIN [Concomitant]
     Dosage: UNK, DAILY (1/D)
     Route: 048
     Dates: end: 20080604
  4. LISINOPRIL [Concomitant]
     Dosage: 20 MG, DAILY (1/D)
     Dates: end: 20080601
  5. METFORMIN [Concomitant]
     Dosage: 500 MG, 2/D
     Dates: end: 20080601
  6. PROTONIX /01263201/ [Concomitant]
     Dosage: 20 MG, DAILY (1/D)
  7. PROTONIX /01263201/ [Concomitant]
     Dosage: 40 MG, DAILY (1/D)
     Route: 048
  8. PROTONIX /01263201/ [Concomitant]
     Dosage: 40 MG, DAILY (1/D)
     Route: 042
     Dates: start: 20080816
  9. TRICOR [Concomitant]
     Indication: BLOOD CHOLESTEROL
     Dosage: 145 MG, DAILY (1/D)
     Dates: start: 20070301
  10. ZYRTEC [Concomitant]
     Dosage: 10 MG, UNKNOWN
  11. FLUCONAZOLE [Concomitant]
     Dosage: 150 MG, UNKNOWN
  12. NAPROXEN [Concomitant]
     Dosage: 500 MG, UNKNOWN
  13. CYCLOBENZAPRINE [Concomitant]
     Dosage: 10 MG, UNKNOWN
  14. PROPOXYPHENE NAPSYLATE W/ ACETAMINOPHEN [Concomitant]
  15. PROAIR HFA [Concomitant]
  16. AMOXICILLIN SODIUM W/CLAVULANATE POTASSIUM [Concomitant]
  17. GLUCOPHAGE [Concomitant]
     Dosage: 500 MG, 2/D
     Route: 048
  18. GLUCOPHAGE [Concomitant]
     Dosage: 1000 MG, 2/D
  19. ASCORBIC ACID [Concomitant]
  20. ALBUTEROL [Concomitant]
     Dosage: UNK, AS NEEDED
     Route: 055
  21. HYDROCHLOROTHIAZIDE [Concomitant]
     Dosage: UNK, DAILY (1/D)
     Route: 048
     Dates: end: 20080601
  22. GLYBURIDE [Concomitant]
     Dates: end: 20080601
  23. LIPITOR [Concomitant]
     Dosage: 20 MG, UNK
  24. PROVIGIL [Concomitant]
     Indication: SOMNOLENCE
     Dosage: 200 MG, UNK
     Dates: start: 20070301
  25. AUGMENTIN /02043401/ [Concomitant]
     Indication: URINARY TRACT INFECTION
  26. DIOVAN [Concomitant]
  27. AMARYL [Concomitant]
     Dosage: 2 MG, DAILY (1/D)
     Dates: start: 20071101
  28. LOVAZA [Concomitant]
     Dates: start: 20080201
  29. AMOXICILLIN TRIHYDRATE W/CLAVULANTE POTASSIUM [Concomitant]
  30. OXYCODONE AND ACETAMINOPHEN [Concomitant]
  31. ACETAMINOPHEN AND HYDROCODONE BITARTRATE [Concomitant]

REACTIONS (12)
  - ASPARTATE AMINOTRANSFERASE INCREASED [None]
  - CHEST PAIN [None]
  - COLD SWEAT [None]
  - CONSTIPATION [None]
  - DEHYDRATION [None]
  - DIZZINESS [None]
  - HYPERHIDROSIS [None]
  - LETHARGY [None]
  - PANCREATITIS [None]
  - PANCREATITIS ACUTE [None]
  - PRESYNCOPE [None]
  - URINARY TRACT INFECTION [None]
